FAERS Safety Report 6298800-9 (Version None)
Quarter: 2009Q3

REPORT INFORMATION
  Report Type: 
  Country: None (occurrence: None)
  Receive Date: 20090806
  Receipt Date: 20070703
  Transmission Date: 20100115
  Serious: Yes (Hospitalization, Other)
  Sender: FDA-Public Use
  Company Number: US-ASTRAZENECA-2006UW25983

PATIENT
  Age: 581 Month
  Sex: Female
  Weight: 90.7 kg

DRUGS (29)
  1. SEROQUEL [Suspect]
     Indication: PSYCHOTIC DISORDER
     Dosage: 50 - 150 MG DAILY, AS REQUIRED
     Route: 048
     Dates: start: 20040517, end: 20040901
  2. SEROQUEL [Suspect]
     Indication: AFFECTIVE DISORDER
     Dosage: 50 - 150 MG DAILY, AS REQUIRED
     Route: 048
     Dates: start: 20040517, end: 20040901
  3. SEROQUEL [Suspect]
     Route: 048
     Dates: start: 20041001, end: 20050101
  4. SEROQUEL [Suspect]
     Route: 048
     Dates: start: 20041001, end: 20050101
  5. HALDOL [Concomitant]
     Dosage: 2 - 5 MG DAILY
     Dates: start: 20020122, end: 20040101
  6. HALDOL [Concomitant]
     Dates: start: 20030101, end: 20050101
  7. HALDOL [Concomitant]
     Route: 048
     Dates: start: 20040922
  8. CYMBALTA [Concomitant]
  9. DEPAKOTE [Concomitant]
     Dosage: 1 - 1500 MG DAILY
     Route: 048
     Dates: start: 20020122
  10. SERTRALINE [Concomitant]
     Dates: start: 20020122
  11. ATENOLOL [Concomitant]
     Dosage: 25 - 100 MG DAILY
     Route: 048
     Dates: start: 20020122
  12. HYDROCHLOROTHIAZIDE [Concomitant]
     Dosage: 25 - 75 MG DAILY
     Route: 048
     Dates: start: 20020122
  13. DIAZEPAM [Concomitant]
     Dates: start: 20020122
  14. NORVASC [Concomitant]
     Dates: start: 20020122
  15. PREDNISONE [Concomitant]
     Indication: HYPERSENSITIVITY
     Dosage: THREE TIMES AS NEEDED
     Dates: start: 20060918
  16. CELEXA [Concomitant]
     Dates: start: 20061010
  17. CLONAZEPAM [Concomitant]
     Dosage: 0.5 - 1.5 MG DAILY
     Dates: start: 20061010
  18. LUNESTA [Concomitant]
     Dates: start: 20061010
  19. VPA ER [Concomitant]
     Dates: start: 20051104
  20. LEXAPRO [Concomitant]
     Dosage: 20 - 30 MG DAILY
     Route: 048
     Dates: start: 20040517
  21. CLOMIPRAMINE HCL [Concomitant]
     Route: 048
     Dates: start: 20050415
  22. CLONIDINE [Concomitant]
     Route: 048
     Dates: start: 20050415
  23. ALLOPURINOL [Concomitant]
     Dosage: 100 - 300 MG DAILY
     Route: 048
     Dates: start: 20050415
  24. UROCIT-K [Concomitant]
     Route: 048
     Dates: start: 20050415
  25. ZETIA [Concomitant]
     Route: 048
     Dates: start: 20050415
  26. LEVOTHYROXINE SODIUM [Concomitant]
     Route: 048
     Dates: start: 20050415
  27. LIPITOR [Concomitant]
     Route: 048
     Dates: start: 20050415
  28. WELLBUTRIN SR [Concomitant]
     Route: 048
     Dates: start: 20040802
  29. NEXIUM [Concomitant]
     Dates: start: 20040802

REACTIONS (7)
  - DIABETES MELLITUS [None]
  - DIABETES MELLITUS INADEQUATE CONTROL [None]
  - DIABETIC FOOT [None]
  - DIABETIC NEUROPATHY [None]
  - DIABETIC VASCULAR DISORDER [None]
  - HYPOGLYCAEMIA [None]
  - NEPHROPATHY [None]
